FAERS Safety Report 23223107 (Version 2)
Quarter: 2025Q4

REPORT INFORMATION
  Report Type: Report from Study
  Country: CA (occurrence: CA)
  Receive Date: 20231123
  Receipt Date: 20251029
  Transmission Date: 20260118
  Serious: No
  Sender: SANDOZ
  Company Number: CA-SANDOZ-SDZ2023CA057674

PATIENT
  Sex: Female

DRUGS (1)
  1. ERELZI [Suspect]
     Active Substance: ETANERCEPT-SZZS
     Indication: Psoriatic arthropathy
     Dosage: 50 MG, QW
     Route: 058
     Dates: start: 20211119

REACTIONS (1)
  - General physical health deterioration [Unknown]
